FAERS Safety Report 7698773-8 (Version None)
Quarter: 2011Q3

REPORT INFORMATION
  Report Type: 
  Country: None (occurrence: None)
  Receive Date: 20110819
  Receipt Date: 20110815
  Transmission Date: 20111222
  Serious: Yes (Hospitalization)
  Sender: FDA-Public Use
  Company Number: US-ABBOTT-11P-163-0846664-00

PATIENT
  Sex: Female
  Weight: 99.426 kg

DRUGS (3)
  1. CYMBALTA [Concomitant]
     Indication: PRODUCT USED FOR UNKNOWN INDICATION
  2. METHOTREXATE [Concomitant]
     Indication: RHEUMATOID ARTHRITIS
     Dates: start: 20100101, end: 20100401
  3. HUMIRA [Suspect]
     Indication: RHEUMATOID ARTHRITIS
     Dates: start: 20100401

REACTIONS (6)
  - INTERVERTEBRAL DISC PROTRUSION [None]
  - WOUND COMPLICATION [None]
  - BACK PAIN [None]
  - OPEN WOUND [None]
  - WOUND SECRETION [None]
  - STAPHYLOCOCCAL INFECTION [None]
